FAERS Safety Report 7477897-4 (Version None)
Quarter: 2011Q2

REPORT INFORMATION
  Report Type: 
  Country: None (occurrence: None)
  Receive Date: 20110513
  Receipt Date: 20110427
  Transmission Date: 20111010
  Serious: Yes (Hospitalization, Other)
  Sender: FDA-Public Use
  Company Number: US-BAYER-201041891NA

PATIENT
  Age: 42 Year
  Sex: Female
  Weight: 88 kg

DRUGS (12)
  1. ASPIRIN [Concomitant]
  2. HEPARIN [Concomitant]
     Dosage: 37000 U, UNK
     Dates: start: 20040511
  3. PHENYLEPHRINE HCL [Concomitant]
     Dosage: 20 MG, CARDIOPULMONARY BYPASS PUMP
     Dates: start: 20040511
  4. TRASYLOL [Suspect]
     Indication: CORONARY ARTERY BYPASS
     Dosage: 1ML, BOULS OF UNKNOWN AMOUNT FOLLOWED BY A CONTINUOUS INFUSION OF 50 CC/HR
     Route: 042
     Dates: start: 20040511, end: 20040511
  5. LASIX [Concomitant]
  6. ZOLOFT [Concomitant]
  7. ALDACTONE [Concomitant]
  8. INSULIN [INSULIN] [Concomitant]
  9. VERSED [Concomitant]
     Dosage: 20 MG, UNK
     Route: 042
     Dates: start: 20040511
  10. PROTAMINE SULFATE [Concomitant]
     Dosage: 370 MG, CARDIOPULMONARY BYPASS PUMP
     Dates: start: 20040511
  11. TRASYLOL [Suspect]
     Dosage: 200 ML PUMP PRIME
     Route: 042
     Dates: start: 20040511, end: 20040511
  12. EPINEPHRINE [Concomitant]
     Dosage: 0.5 MCG/KG/MIN, CARDIOPULMONARY BYPASS PUMP
     Route: 041
     Dates: start: 20040511

REACTIONS (15)
  - RENAL INJURY [None]
  - EMOTIONAL DISTRESS [None]
  - ANHEDONIA [None]
  - ANXIETY [None]
  - PAIN [None]
  - UNEVALUABLE EVENT [None]
  - PSYCHIATRIC SYMPTOM [None]
  - FEAR [None]
  - DEPRESSION [None]
  - MULTI-ORGAN FAILURE [None]
  - RENAL DISORDER [None]
  - FEAR OF DEATH [None]
  - RENAL FAILURE [None]
  - INJURY [None]
  - NERVOUSNESS [None]
